FAERS Safety Report 4444346-X (Version None)
Quarter: 2004Q3

REPORT INFORMATION
  Report Type: 
  Country: None (occurrence: None)
  Receive Date: 20040730
  Receipt Date: 20031102
  Transmission Date: 20050211
  Serious: No
  Sender: FDA-Public Use
  Company Number: 03H-163-0239744-00

PATIENT

DRUGS (1)
  1. SEVOFLURANE [Suspect]
     Indication: ANAESTHESIA
     Dosage: INHALATION
     Route: 055

REACTIONS (1)
  - OXYGEN SATURATION DECREASED [None]
